FAERS Safety Report 19256738 (Version 2)
Quarter: 2021Q2

REPORT INFORMATION
  Report Type: Spontaneous
  Country: FR (occurrence: FR)
  Receive Date: 20210513
  Receipt Date: 20210521
  Transmission Date: 20210717
  Serious: Yes (Life-Threatening, Hospitalization, Other)
  Sender: FDA-Public Use
  Company Number: FR-SA-2021SA159693

PATIENT
  Age: 58 Year
  Sex: Female

DRUGS (3)
  1. FOLINIC ACID [Suspect]
     Active Substance: LEUCOVORIN
     Indication: COLORECTAL CANCER METASTATIC
     Dosage: UNK UNK, QCY
     Dates: start: 201704, end: 201802
  2. OXALIPLATIN. [Suspect]
     Active Substance: OXALIPLATIN
     Indication: COLORECTAL CANCER METASTATIC
     Dosage: UNK, QCY
     Dates: start: 201704, end: 201802
  3. FLUOROURACIL. [Suspect]
     Active Substance: FLUOROURACIL
     Indication: COLORECTAL CANCER METASTATIC
     Dosage: UNK UNK, QCY
     Dates: start: 201704, end: 201802

REACTIONS (10)
  - Systemic scleroderma [Unknown]
  - Respiratory distress [Unknown]
  - Lymphadenopathy mediastinal [Unknown]
  - Total lung capacity decreased [Unknown]
  - Forced vital capacity decreased [Unknown]
  - Lung diffusion test decreased [Unknown]
  - Interstitial lung disease [Unknown]
  - Lung disorder [Unknown]
  - Modified Rodnan skin score abnormal [Unknown]
  - Disease progression [Unknown]

NARRATIVE: CASE EVENT DATE: 201804
